FAERS Safety Report 8082605-2 (Version None)
Quarter: 2012Q1

REPORT INFORMATION
  Report Type: 
  Country: None (occurrence: None)
  Receive Date: 20120127
  Receipt Date: 20110226
  Transmission Date: 20120608
  Serious: Yes (Hospitalization)
  Sender: FDA-Public Use
  Company Number: US-ABBOTT-11P-163-0707258-00

PATIENT
  Sex: Female
  Weight: 111.23 kg

DRUGS (2)
  1. HUMIRA [Suspect]
     Indication: RHEUMATOID ARTHRITIS
     Route: 058
     Dates: start: 20090401, end: 20110104
  2. HUMIRA [Suspect]
     Route: 058
     Dates: start: 20110215

REACTIONS (3)
  - ARTHRALGIA [None]
  - JOINT LOCK [None]
  - JOINT STIFFNESS [None]
